FAERS Safety Report 4528873-2 (Version None)
Quarter: 2004Q4

REPORT INFORMATION
  Report Type: 
  Country: None (occurrence: None)
  Receive Date: 20041214
  Receipt Date: 20041126
  Transmission Date: 20050328
  Serious: Yes (Hospitalization)
  Sender: FDA-Public Use
  Company Number: DSA_23464_2003

PATIENT
  Age: 64 Year
  Sex: Male

DRUGS (11)
  1. ENALAPRIL MALEATE [Suspect]
     Indication: CARDIAC FAILURE
     Dosage: 1.25 MG Q DAY PO
     Route: 048
     Dates: start: 20030807, end: 20030809
  2. SIMVASTATIN [Suspect]
     Indication: HYPERLIPIDAEMIA
     Dosage: 20 M Q DAY PO
     Route: 048
     Dates: start: 20030807, end: 20030809
  3. IMPUGAN [Suspect]
     Indication: CARDIAC FAILURE
     Dosage: 80 MG Q DAY PO
     Route: 048
     Dates: start: 20030806
  4. PULMICORT [Concomitant]
  5. LANSOPRAZOLE [Concomitant]
  6. SELOKEN [Concomitant]
  7. TRAMADOL HCL [Concomitant]
  8. NITROGLYCERIN [Concomitant]
  9. FUROSEMIDE [Concomitant]
  10. FRAGMIN [Concomitant]
  11. WARAN [Concomitant]

REACTIONS (2)
  - BLOOD CREATININE INCREASED [None]
  - ISCHAEMIC HEPATITIS [None]
